FAERS Safety Report 7493958-8 (Version None)
Quarter: 2011Q2

REPORT INFORMATION
  Report Type: 
  Country: None (occurrence: None)
  Receive Date: 20110520
  Receipt Date: 20110513
  Transmission Date: 20111010
  Serious: Yes (Hospitalization)
  Sender: FDA-Public Use
  Company Number: GR-ROCHE-777346

PATIENT
  Age: 47 Year
  Sex: Female
  Weight: 95 kg

DRUGS (2)
  1. XELODA [Suspect]
     Indication: BREAST CANCER
     Route: 048
     Dates: start: 20110121, end: 20110124
  2. LAPATINIB [Suspect]
     Indication: BREAST CANCER
     Dosage: FREQUENCY: ONCE DAILY
     Route: 048
     Dates: start: 20110114, end: 20110125

REACTIONS (1)
  - ERYTHEMA MULTIFORME [None]
